FAERS Safety Report 4375108-X (Version None)
Quarter: 2004Q2

REPORT INFORMATION
  Report Type: 
  Country: None (occurrence: None)
  Receive Date: 20040604
  Receipt Date: 20040520
  Transmission Date: 20050107
  Serious: Yes (Hospitalization)
  Sender: FDA-Public Use
  Company Number: K200400779

PATIENT
  Age: 81 Year
  Sex: Female

DRUGS (7)
  1. ALTACE [Suspect]
     Indication: HYPERTENSION
     Dosage: 2.5 MG, BID, ORAL
     Route: 048
     Dates: start: 20020101
  2. FELODIPINE [Suspect]
     Indication: HYPERTENSION
     Dosage: 2.5 MG, BID, ORAL
     Route: 048
     Dates: start: 20020101
  3. ACTRAPID HUMAN (INSULIN HUMAN) SOLUTION, 10IU [Suspect]
     Indication: DIABETES MELLITUS NON-INSULIN-DEPENDENT
     Dosage: 10 IU, QD, SUBCUTANEOUS; 4 IU, QD, SUBCUTANEOUS
     Route: 058
     Dates: start: 20020101, end: 20040101
  4. ACTRAPID HUMAN (INSULIN HUMAN) SOLUTION, 10IU [Suspect]
     Indication: DIABETES MELLITUS NON-INSULIN-DEPENDENT
     Dosage: 10 IU, QD, SUBCUTANEOUS; 4 IU, QD, SUBCUTANEOUS
     Route: 058
     Dates: start: 20040101
  5. ACTRAPHANE 30/70 (INSULIN HUMAN INJECTION, ISOPHANE) 50 IU [Suspect]
     Indication: DIABETES MELLITUS NON-INSULIN-DEPENDENT
     Dosage: 50 IU, QD, SUBCUTANEOUS; 36 IU, QD, SUBCUTANEOUS
     Route: 058
     Dates: start: 20020101, end: 20040101
  6. ACTRAPHANE 30/70 (INSULIN HUMAN INJECTION, ISOPHANE) 50 IU [Suspect]
     Indication: DIABETES MELLITUS NON-INSULIN-DEPENDENT
     Dosage: 50 IU, QD, SUBCUTANEOUS; 36 IU, QD, SUBCUTANEOUS
     Route: 058
     Dates: start: 20040101
  7. AQUAPHOR TABLET (XIPAMIDE) [Concomitant]

REACTIONS (3)
  - COMA [None]
  - DRUG INTERACTION [None]
  - SHOCK HYPOGLYCAEMIC [None]
